FAERS Safety Report 6398873-9 (Version None)
Quarter: 2009Q4

REPORT INFORMATION
  Report Type: 
  Country: None (occurrence: None)
  Receive Date: 20091013
  Receipt Date: 20091001
  Transmission Date: 20100525
  Serious: Yes (Other)
  Sender: FDA-Public Use
  Company Number: JP-PFIZER INC-2009277012

PATIENT
  Age: 70 Year

DRUGS (6)
  1. GABAPEN [Suspect]
     Dosage: 400MG/DAY
     Route: 048
  2. ZYPREXA [Concomitant]
     Dosage: UNK
  3. HYPEN [Concomitant]
     Dosage: UNK
  4. MUCOSTA [Concomitant]
     Dosage: UNK
  5. TAKEPRON [Concomitant]
     Dosage: UNK
  6. FENTANYL [Concomitant]
     Dosage: UNK

REACTIONS (2)
  - GAIT DISTURBANCE [None]
  - SPINAL CORD COMPRESSION [None]
